FAERS Safety Report 23689038 (Version 1)
Quarter: 2024Q1

REPORT INFORMATION
  Report Type: Spontaneous
  Country: US (occurrence: US)
  Receive Date: 20240329
  Receipt Date: 20240329
  Transmission Date: 20240410
  Serious: No
  Sender: FDA-Public Use
  Company Number: US-SANDOZ-SDZ2024US033746

PATIENT
  Sex: Female

DRUGS (1)
  1. RECLAST [Suspect]
     Active Substance: ZOLEDRONIC ACID
     Indication: Product used for unknown indication
     Dosage: 5MG/100ML
     Route: 065

REACTIONS (6)
  - Dyspnoea [Unknown]
  - Pyrexia [Unknown]
  - Musculoskeletal discomfort [Unknown]
  - Chromaturia [Unknown]
  - Myalgia [Unknown]
  - Blood test [Unknown]
